FAERS Safety Report 22079894 (Version 1)
Quarter: 2023Q1

REPORT INFORMATION
  Report Type: Report from Study
  Country: CA (occurrence: CA)
  Receive Date: 20230309
  Receipt Date: 20230309
  Transmission Date: 20230417
  Serious: Yes (Other)
  Sender: FDA-Public Use
  Company Number: CA-ABBVIE-4327251

PATIENT
  Sex: Male

DRUGS (1)
  1. RINVOQ [Suspect]
     Active Substance: UPADACITINIB
     Indication: Dermatitis atopic
     Route: 048
     Dates: start: 20220826

REACTIONS (4)
  - Acne pustular [Recovering/Resolving]
  - Acne cystic [Recovering/Resolving]
  - Acne pustular [Recovering/Resolving]
  - Acne cystic [Recovering/Resolving]
